FAERS Safety Report 5299251-6 (Version None)
Quarter: 2007Q2

REPORT INFORMATION
  Report Type: 
  Country: None (occurrence: None)
  Receive Date: 20070410
  Receipt Date: 20060426
  Transmission Date: 20071010
  Serious: Yes (Hospitalization)
  Sender: FDA-Public Use
  Company Number: BDI-008183

PATIENT
  Sex: Female

DRUGS (1)
  1. ISOVUE-370 [Suspect]
     Indication: COMPUTERISED TOMOGRAM
     Dosage: 30 ML ONCE SC
     Route: 058
     Dates: start: 20060425, end: 20060425

REACTIONS (4)
  - BLISTER [None]
  - CONTRAST MEDIA REACTION [None]
  - EXTRAVASATION [None]
  - SKIN EXFOLIATION [None]
